FAERS Safety Report 17908239 (Version 1)
Quarter: 2020Q2

REPORT INFORMATION
  Report Type: Spontaneous
  Country: CN (occurrence: CN)
  Receive Date: 20200617
  Receipt Date: 20200617
  Transmission Date: 20200714
  Serious: Yes (Life-Threatening, Other)
  Sender: FDA-Public Use
  Company Number: CN-PFIZER INC-2020231461

PATIENT
  Age: 64 Year
  Sex: Male

DRUGS (2)
  1. DIFLUCAN [Suspect]
     Active Substance: FLUCONAZOLE
     Indication: PNEUMONIA FUNGAL
     Dosage: 0.4 G, 1X/DAY
     Route: 041
     Dates: start: 20200603, end: 20200603
  2. DIFLUCAN [Suspect]
     Active Substance: FLUCONAZOLE
     Indication: CANDIDA INFECTION

REACTIONS (8)
  - Supraventricular extrasystoles [Recovering/Resolving]
  - Oxygen saturation immeasurable [Recovering/Resolving]
  - Blood pressure immeasurable [Recovering/Resolving]
  - Unresponsive to stimuli [Recovering/Resolving]
  - Heart rate abnormal [Recovering/Resolving]
  - Ventricular tachycardia [Recovering/Resolving]
  - Ventricular fibrillation [Recovering/Resolving]
  - Abnormal behaviour [Recovering/Resolving]

NARRATIVE: CASE EVENT DATE: 20200604
